FAERS Safety Report 5748470-0 (Version None)
Quarter: 2008Q2

REPORT INFORMATION
  Report Type: 
  Country: None (occurrence: None)
  Receive Date: 20080523
  Receipt Date: 20080513
  Transmission Date: 20081010
  Serious: Yes (Hospitalization)
  Sender: FDA-Public Use
  Company Number: US-PFIZER INC-2008041530

PATIENT
  Sex: Female
  Weight: 77.272 kg

DRUGS (1)
  1. CHANTIX [Suspect]
     Indication: SMOKING CESSATION THERAPY
     Route: 048
     Dates: start: 20080504, end: 20080513

REACTIONS (3)
  - FOOT OPERATION [None]
  - NAUSEA [None]
  - VOMITING [None]
